FAERS Safety Report 23083184 (Version 1)
Quarter: 2023Q4

REPORT INFORMATION
  Report Type: Spontaneous
  Country: ES (occurrence: ES)
  Receive Date: 20231019
  Receipt Date: 20231019
  Transmission Date: 20240110
  Serious: Yes (Hospitalization)
  Sender: FDA-Public Use
  Company Number: ES-ROCHE-3440099

PATIENT
  Age: 70 Year
  Sex: Male

DRUGS (6)
  1. VALGANCICLOVIR [Suspect]
     Active Substance: VALGANCICLOVIR
     Indication: Cytomegalovirus infection
     Route: 065
     Dates: start: 20230425, end: 20230511
  2. CELLCEPT [Suspect]
     Active Substance: MYCOPHENOLATE MOFETIL
     Indication: Immunosuppressant drug therapy
     Dosage: 50 TABLETS; PAUSED ON 10/6/23, RESTARTED ON 29/6 AND WITHDRAWN ON 25/7/23
     Route: 048
     Dates: start: 20230208, end: 20230725
  3. TACROLIMUS [Suspect]
     Active Substance: TACROLIMUS
     Indication: Immunosuppressant drug therapy
     Route: 065
     Dates: start: 20230208, end: 20230610
  4. TACROLIMUS [Suspect]
     Active Substance: TACROLIMUS
     Route: 065
     Dates: start: 20230610
  5. TACROLIMUS [Suspect]
     Active Substance: TACROLIMUS
     Route: 065
     Dates: start: 20230804
  6. ACENOCOUMAROL [Concomitant]
     Active Substance: ACENOCOUMAROL

REACTIONS (3)
  - Polyneuropathy [Recovering/Resolving]
  - Rash pruritic [Recovering/Resolving]
  - Off label use [Unknown]

NARRATIVE: CASE EVENT DATE: 20230425
